FAERS Safety Report 6663650-8 (Version None)
Quarter: 2010Q2

REPORT INFORMATION
  Report Type: 
  Country: None (occurrence: None)
  Receive Date: 20100401
  Receipt Date: 20100330
  Transmission Date: 20101027
  Serious: Yes (Death)
  Sender: FDA-Public Use
  Company Number: US-ROCHE-690664

PATIENT
  Sex: Female

DRUGS (2)
  1. ACTEMRA [Suspect]
     Indication: DRUG USE FOR UNKNOWN INDICATION
     Route: 065
     Dates: start: 20100208, end: 20100208
  2. ACTEMRA [Suspect]
     Route: 065
     Dates: start: 20100222, end: 20100222

REACTIONS (1)
  - GRAFT VERSUS HOST DISEASE [None]
